FAERS Safety Report 20534392 (Version 3)
Quarter: 2022Q1

REPORT INFORMATION
  Report Type: Spontaneous
  Country: US (occurrence: US)
  Receive Date: 20220302
  Receipt Date: 20220328
  Transmission Date: 20220424
  Serious: No
  Sender: FDA-Public Use
  Company Number: US-SA-SAC20220223000885

PATIENT
  Age: 59 Year
  Sex: Male

DRUGS (1)
  1. DUPIXENT [Suspect]
     Active Substance: DUPILUMAB
     Indication: Dermatitis atopic
     Dosage: 300 MG
     Route: 058
     Dates: start: 20211215, end: 20220222

REACTIONS (6)
  - Peripheral swelling [Unknown]
  - Dry skin [Unknown]
  - Swelling face [Unknown]
  - Pruritus [Unknown]
  - Hypersensitivity [Unknown]
  - Throat irritation [Unknown]

NARRATIVE: CASE EVENT DATE: 20211221
